FAERS Safety Report 18531816 (Version 1)
Quarter: 2020Q4

REPORT INFORMATION
  Report Type: Spontaneous
  Country: JP (occurrence: JP)
  Receive Date: 20201123
  Receipt Date: 20201123
  Transmission Date: 20210114
  Serious: Yes (Hospitalization)
  Sender: FDA-Public Use
  Company Number: JP-ROCHE-2715062

PATIENT
  Age: 65 Year
  Sex: Male
  Weight: 60 kg

DRUGS (10)
  1. CARBOPLATIN. [Concomitant]
     Active Substance: CARBOPLATIN
     Indication: NEUROENDOCRINE CARCINOMA
     Dosage: UNCERTAIN DOSAGE FOR FOUR COURSES
     Route: 041
     Dates: end: 2020
  2. AMLODIPINE BESILATE [Concomitant]
     Active Substance: AMLODIPINE BESYLATE
     Dosage: DOSAGE IS UNCERTAIN.
     Route: 065
  3. BUSCOPAN [Concomitant]
     Active Substance: BUTYLSCOPOLAMINE BROMIDE
     Dosage: DOSAGE IS UNCERTAIN.
     Route: 048
  4. TECENTRIQ [Suspect]
     Active Substance: ATEZOLIZUMAB
     Indication: NEUROENDOCRINE CARCINOMA
     Dosage: FOUR COURSES WITH UNKNOWN DOSE INTERVAL
     Route: 041
     Dates: start: 20200213, end: 2020
  5. TECENTRIQ [Suspect]
     Active Substance: ATEZOLIZUMAB
     Dosage: FIVE COURSES AS MAINTENANCE THERAPY WITH UNKNOWN DOSE INTERVAL
     Route: 041
     Dates: start: 2020, end: 20200812
  6. ALLOID G [Concomitant]
     Active Substance: SODIUM ALGINATE
     Dosage: DOSAGE IS UNCERTAIN.
     Route: 065
  7. NAUZELIN [Concomitant]
     Active Substance: DOMPERIDONE
     Dosage: DOSAGE IS UNCERTAIN.
     Route: 065
  8. ETOPOSIDE. [Concomitant]
     Active Substance: ETOPOSIDE
     Indication: NEUROENDOCRINE CARCINOMA
     Dosage: UNCERTAIN DOSAGE FOR FOUR COURSES
     Route: 065
     Dates: end: 2020
  9. SELBEX [Concomitant]
     Active Substance: TEPRENONE
     Dosage: DOSAGE IS UNCERTAIN.
     Route: 048
  10. STROCAIN (JAPAN) [Concomitant]
     Dosage: DOSAGE IS UNCERTAIN.
     Route: 065

REACTIONS (4)
  - Off label use [Unknown]
  - Intentional product use issue [Unknown]
  - Adrenocorticotropic hormone deficiency [Not Recovered/Not Resolved]
  - Renal disorder [Recovering/Resolving]

NARRATIVE: CASE EVENT DATE: 2020
